FAERS Safety Report 7455238-6 (Version None)
Quarter: 2011Q2

REPORT INFORMATION
  Report Type: 
  Country: None (occurrence: None)
  Receive Date: 20110503
  Receipt Date: 20110427
  Transmission Date: 20111010
  Serious: Yes (Hospitalization, Other)
  Sender: FDA-Public Use
  Company Number: PHHY2011US33717

PATIENT
  Age: 47 Year
  Sex: Male

DRUGS (1)
  1. TOBI [Suspect]
     Dosage: 300 MG, BID, 28 DAYS ON 28 DAYS OFF
     Dates: start: 20110310, end: 20110405

REACTIONS (2)
  - INFECTIVE PULMONARY EXACERBATION OF CYSTIC FIBROSIS [None]
  - INFECTION [None]
